FAERS Safety Report 14252377 (Version 2)
Quarter: 2017Q4

REPORT INFORMATION
  Report Type: Spontaneous
  Country: BR (occurrence: BR)
  Receive Date: 20171205
  Receipt Date: 20171212
  Transmission Date: 20180321
  Serious: Yes (Other)
  Sender: FDA-Public Use
  Company Number: BR-PFIZER INC-2017386358

PATIENT
  Age: 65 Year
  Sex: Female

DRUGS (6)
  1. LYRICA [Suspect]
     Active Substance: PREGABALIN
     Indication: FIBROMYALGIA
     Dosage: 75 MG, ONCE A DAY
     Dates: start: 20170830, end: 201709
  2. LYRICA [Suspect]
     Active Substance: PREGABALIN
     Dosage: UNK, 3X/DAY
     Dates: start: 2016
  3. ETNA [Concomitant]
     Active Substance: UNSPECIFIED INGREDIENT
     Dosage: UNK
  4. LYRICA [Suspect]
     Active Substance: PREGABALIN
     Indication: PAIN
     Dosage: 75 MG, 2X/DAY (ONE TABLET EVERY 12 HOURS IN THE FIRST WEEK )
     Dates: start: 20170901, end: 201709
  5. LYRICA [Suspect]
     Active Substance: PREGABALIN
     Dosage: 2 TABLETS IN THE MORNING AND 2 TABLETS AT NIGHT IN THE SECOND WEEK
     Dates: start: 20170901, end: 201709
  6. XALACOM [Concomitant]
     Active Substance: LATANOPROST\TIMOLOL MALEATE
     Indication: GLAUCOMA
     Dosage: 2 GTT, 1X/DAY [2 DROPS (1 IN EACH EYE) ONCE DAILY (IN THE MORNING)]
     Dates: start: 2014

REACTIONS (5)
  - Generalised oedema [Not Recovered/Not Resolved]
  - Dengue fever [Not Recovered/Not Resolved]
  - Feeling abnormal [Not Recovered/Not Resolved]
  - Pain [Not Recovered/Not Resolved]
  - Arthralgia [Not Recovered/Not Resolved]

NARRATIVE: CASE EVENT DATE: 20170904
